FAERS Safety Report 7584235-5 (Version None)
Quarter: 2011Q2

REPORT INFORMATION
  Report Type: 
  Country: None (occurrence: None)
  Receive Date: 20110630
  Receipt Date: 20110616
  Transmission Date: 20111010
  Serious: No
  Sender: FDA-Public Use
  Company Number: US-ABBOTT-11P-163-0732997-00

PATIENT
  Sex: Male
  Weight: 81.72 kg

DRUGS (8)
  1. ISENTRESS [Concomitant]
     Indication: PRODUCT USED FOR UNKNOWN INDICATION
  2. INTELENCE [Concomitant]
     Indication: PRODUCT USED FOR UNKNOWN INDICATION
  3. FISH OIL [Concomitant]
     Indication: PRODUCT USED FOR UNKNOWN INDICATION
  4. NORVIR [Suspect]
     Indication: HIV INFECTION
     Dates: start: 19960101
  5. NORVIR [Suspect]
     Indication: HIV INFECTION
  6. FOLIC ACID [Concomitant]
     Indication: PRODUCT USED FOR UNKNOWN INDICATION
  7. PREZISTA [Concomitant]
     Indication: PRODUCT USED FOR UNKNOWN INDICATION
  8. VALACYCLOVIR [Concomitant]
     Indication: PRODUCT USED FOR UNKNOWN INDICATION

REACTIONS (2)
  - DIABETIC NEUROPATHY [None]
  - BLOOD GLUCOSE INCREASED [None]
